FAERS Safety Report 4298415-8 (Version None)
Quarter: 2004Q1

REPORT INFORMATION
  Report Type: 
  Country: None (occurrence: None)
  Receive Date: 20040218
  Receipt Date: 20030602
  Transmission Date: 20041129
  Serious: No
  Sender: FDA-Public Use
  Company Number: US-BRISTOL-MYERS SQUIBB COMPANY-12290417

PATIENT
  Age: 43 Year
  Sex: Female

DRUGS (2)
  1. STADOL [Suspect]
     Indication: MIGRAINE
     Dosage: PT USES OCCASIONALLY, 1 SPRAY EVERY 6-8 HR AS NEEDED FOR THE LAST ^7^ YEARS
     Route: 045
  2. IMITREX [Concomitant]
     Route: 030

REACTIONS (2)
  - NORMAL NEWBORN [None]
  - PREGNANCY [None]
